FAERS Safety Report 6921436-0 (Version None)
Quarter: 2010Q3

REPORT INFORMATION
  Report Type: 
  Country: None (occurrence: None)
  Receive Date: 20100812
  Receipt Date: 20090807
  Transmission Date: 20110219
  Serious: No
  Sender: FDA-Public Use
  Company Number: A0801051A

PATIENT
  Age: 70 Year
  Sex: Female

DRUGS (2)
  1. TAGAMET HB 200 [Suspect]
     Route: 048
     Dates: start: 20090731
  2. UNKNOWN MEDICATION [Concomitant]

REACTIONS (4)
  - BURNING SENSATION [None]
  - LIP DISORDER [None]
  - LIP OEDEMA [None]
  - PALLOR [None]
